FAERS Safety Report 6728439-X (Version None)
Quarter: 2010Q2

REPORT INFORMATION
  Report Type: 
  Country: None (occurrence: None)
  Receive Date: 20100517
  Receipt Date: 20100504
  Transmission Date: 20101027
  Serious: Yes (Hospitalization, Other)
  Sender: FDA-Public Use
  Company Number: US-ELI_LILLY_AND_COMPANY-US201004002939

PATIENT
  Sex: Female

DRUGS (1)
  1. FORTEO [Suspect]
     Indication: OSTEOPOROSIS
     Dosage: 20 UG, DAILY (1/D)
     Dates: start: 20091001, end: 20100322

REACTIONS (6)
  - BALANCE DISORDER [None]
  - BLOOD PRESSURE INCREASED [None]
  - CLAVICLE FRACTURE [None]
  - DIZZINESS [None]
  - FALL [None]
  - MYALGIA [None]
